FAERS Safety Report 6761186-7 (Version None)
Quarter: 2010Q2

REPORT INFORMATION
  Report Type: 
  Country: None (occurrence: None)
  Receive Date: 20100608
  Receipt Date: 20100602
  Transmission Date: 20101027
  Serious: Yes (Hospitalization)
  Sender: FDA-Public Use
  Company Number: IT-ABBOTT-10P-083-0648437-00

PATIENT
  Age: 82 Year
  Sex: Male

DRUGS (8)
  1. DEPAKENE [Suspect]
     Indication: STATUS EPILEPTICUS
     Route: 048
     Dates: start: 20100506
  2. DEPAKENE [Suspect]
     Route: 048
     Dates: start: 20100501
  3. TEGRETOL [Interacting]
     Indication: STATUS EPILEPTICUS
     Route: 048
     Dates: start: 20010101
  4. ENAPREN [Concomitant]
     Indication: DRUG USE FOR UNKNOWN INDICATION
  5. AMOXICILLIN AND CLAVULANATE POTASSIUM [Concomitant]
     Indication: DRUG USE FOR UNKNOWN INDICATION
  6. ASPIRIN [Concomitant]
     Indication: DRUG USE FOR UNKNOWN INDICATION
  7. LANSOX [Concomitant]
     Indication: DRUG USE FOR UNKNOWN INDICATION
  8. NORVASC [Concomitant]
     Indication: DRUG USE FOR UNKNOWN INDICATION

REACTIONS (3)
  - ATAXIA [None]
  - DRUG INTERACTION [None]
  - PSYCHOMOTOR RETARDATION [None]
